FAERS Safety Report 10684456 (Version 1)
Quarter: 2014Q4

REPORT INFORMATION
  Report Type: Spontaneous
  Country: GB (occurrence: GB)
  Receive Date: 20141231
  Receipt Date: 20141231
  Transmission Date: 20150529
  Serious: Yes (Disabling)
  Sender: FDA-Public Use
  Company Number: GB-ACCORD-027700

PATIENT
  Age: 64 Year
  Sex: Male
  Weight: 79.82 kg

DRUGS (1)
  1. SIMVASTATIN. [Suspect]
     Active Substance: SIMVASTATIN
     Indication: HYPERCHOLESTEROLAEMIA
     Route: 048
     Dates: start: 20100210

REACTIONS (16)
  - Diarrhoea [Unknown]
  - Chest pain [Unknown]
  - Back pain [Unknown]
  - Peripheral coldness [Recovered/Resolved]
  - Abdominal pain upper [Unknown]
  - Abdominal rigidity [Unknown]
  - Flatulence [Recovering/Resolving]
  - Fatigue [Unknown]
  - Cognitive disorder [Recovering/Resolving]
  - Vomiting [Unknown]
  - Muscular weakness [Unknown]
  - Hypoaesthesia [Not Recovered/Not Resolved]
  - Muscle spasms [Recovered/Resolved]
  - Depression [Recovered/Resolved]
  - Muscle twitching [Unknown]
  - Musculoskeletal stiffness [Not Recovered/Not Resolved]

NARRATIVE: CASE EVENT DATE: 20110828
